FAERS Safety Report 14958981 (Version 1)
Quarter: 2018Q2

REPORT INFORMATION
  Report Type: Spontaneous
  Country: US (occurrence: US)
  Receive Date: 20180510
  Receipt Date: 20180510
  Transmission Date: 20180711
  Serious: Yes (Disabling, Other)
  Sender: FDA-Public Use
  Company Number: None

PATIENT
  Age: 46 Year
  Sex: Female

DRUGS (7)
  1. ARNICA [Concomitant]
     Active Substance: ARNICA MONTANA FLOWER
  2. SERATOLINE [Concomitant]
  3. QUETAPIN [Concomitant]
  4. LUPRON [Suspect]
     Active Substance: LEUPROLIDE ACETATE
     Dosage: EVERY 3 MONTHS; SUBCUTANEOUS?
     Route: 058
     Dates: start: 20180228
  5. CALCIUM WITH VITAMIN D [Concomitant]
     Active Substance: CALCIUM\VITAMIN D
  6. WELLBUTRIN [Concomitant]
     Active Substance: BUPROPION HYDROCHLORIDE
  7. GLUCOSAMINE [Concomitant]
     Active Substance: GLUCOSAMINE

REACTIONS (2)
  - Arthropathy [None]
  - Weight increased [None]

NARRATIVE: CASE EVENT DATE: 20180228
